FAERS Safety Report 5596792-9 (Version None)
Quarter: 2008Q1

REPORT INFORMATION
  Report Type: 
  Country: None (occurrence: None)
  Receive Date: 20080118
  Receipt Date: 20080109
  Transmission Date: 20080703
  Serious: Yes (Death)
  Sender: FDA-Public Use
  Company Number: US-PFIZER INC-2008003216

PATIENT
  Age: 61 Year
  Sex: Male

DRUGS (3)
  1. AMLODIPINE [Suspect]
     Route: 048
  2. METOPROLOL TARTRATE [Suspect]
  3. AMIODARONE [Suspect]

REACTIONS (4)
  - INCORRECT DOSE ADMINISTERED [None]
  - INCORRECT ROUTE OF DRUG ADMINISTRATION [None]
  - MEDICATION ERROR [None]
  - WRONG DRUG ADMINISTERED [None]
